FAERS Safety Report 10946503 (Version 1)
Quarter: 2015Q1

REPORT INFORMATION
  Report Type: Spontaneous
  Country: TW (occurrence: TW)
  Receive Date: 20150323
  Receipt Date: 20150323
  Transmission Date: 20150721
  Serious: Yes (Hospitalization)
  Sender: FDA-Public Use
  Company Number: TW-BAYER-2015-042309

PATIENT
  Sex: Male

DRUGS (1)
  1. ULTRAVIST [Suspect]
     Active Substance: IOPROMIDE
     Indication: CATHETERISATION CARDIAC
     Dosage: 200 ML, ONCE
     Dates: start: 20150311, end: 20150311

REACTIONS (2)
  - Erythema [None]
  - Skin swelling [None]

NARRATIVE: CASE EVENT DATE: 20150311
